FAERS Safety Report 4367849-5 (Version None)
Quarter: 2004Q2

REPORT INFORMATION
  Report Type: 
  Country: None (occurrence: None)
  Receive Date: 20040601
  Receipt Date: 20040601
  Transmission Date: 20050107
  Serious: Yes (Hospitalization)
  Sender: FDA-Public Use
  Company Number: None

PATIENT
  Age: 74 Year
  Sex: Female
  Weight: 55.7924 kg

DRUGS (2)
  1. IRESSA [Suspect]
     Indication: PANCREATIC CARCINOMA
     Dosage: 250 MG QD
     Dates: start: 20040324, end: 20040512
  2. GEMZAR [Suspect]
     Indication: PANCREATIC CARCINOMA
     Dosage: 1970 MG
     Dates: start: 20040324, end: 20040505

REACTIONS (1)
  - CEREBROVASCULAR ACCIDENT [None]
